FAERS Safety Report 9392651 (Version 1)
Quarter: 2013Q3

REPORT INFORMATION
  Report Type: Spontaneous
  Country: TR (occurrence: TR)
  Receive Date: 20130710
  Receipt Date: 20130710
  Transmission Date: 20140515
  Serious: Yes (Other)
  Sender: FDA-Public Use
  Company Number: PHHY2013TR071057

PATIENT
  Age: 76 Year
  Sex: Male

DRUGS (3)
  1. DICLOFENAC [Suspect]
     Indication: BACK PAIN
     Dosage: 50 MG, BID
  2. LITHIUM [Interacting]
     Indication: BIPOLAR DISORDER
     Dosage: 900 MG, DAILY
  3. QUETIAPINE [Concomitant]
     Indication: BIPOLAR DISORDER
     Dosage: 100 MG,

REACTIONS (6)
  - Loss of consciousness [Unknown]
  - Toxicity to various agents [Unknown]
  - Drug interaction [Unknown]
  - Diet refusal [Unknown]
  - Hyperhidrosis [Unknown]
  - Tremor [Unknown]
